FAERS Safety Report 19430663 (Version 1)
Quarter: 2021Q2

REPORT INFORMATION
  Report Type: Spontaneous
  Country: US (occurrence: US)
  Receive Date: 20210618
  Receipt Date: 20210618
  Transmission Date: 20210717
  Serious: No
  Sender: FDA-Public Use
  Company Number: US-ROCHE-2771248

PATIENT
  Age: 61 Year
  Sex: Male
  Weight: 78.09 kg

DRUGS (9)
  1. ACTEMRA [Suspect]
     Active Substance: TOCILIZUMAB
  2. OMEGA 3 [Concomitant]
     Active Substance: OMEGA-3 FATTY ACIDS
  3. PREDNISONE. [Concomitant]
     Active Substance: PREDNISONE
     Indication: GIANT CELL ARTERITIS
     Dates: start: 20190705, end: 20201120
  4. ATORVASTATIN [Concomitant]
     Active Substance: ATORVASTATIN
     Dates: start: 20210101
  5. PREDNISONE. [Concomitant]
     Active Substance: PREDNISONE
     Dates: start: 202011, end: 202101
  6. ACTEMRA [Suspect]
     Active Substance: TOCILIZUMAB
     Dosage: ALTERNATING SITES? RIGHT AND LEFT THIGH EVERY WEEK
     Route: 058
     Dates: start: 20210101
  7. ACTEMRA [Suspect]
     Active Substance: TOCILIZUMAB
     Indication: GIANT CELL ARTERITIS
     Route: 058
     Dates: start: 20201223
  8. PREDNISONE. [Concomitant]
     Active Substance: PREDNISONE
     Dates: start: 202101
  9. ACTEMRA [Suspect]
     Active Substance: TOCILIZUMAB

REACTIONS (3)
  - Gingival bleeding [Recovered/Resolved]
  - Headache [Recovered/Resolved]
  - Off label use [Unknown]

NARRATIVE: CASE EVENT DATE: 20201223
